FAERS Safety Report 17181686 (Version 3)
Quarter: 2020Q1

REPORT INFORMATION
  Report Type: Spontaneous
  Country: US (occurrence: US)
  Receive Date: 20191220
  Receipt Date: 20200128
  Transmission Date: 20200409
  Serious: No
  Sender: FDA-Public Use
  Company Number: US-AMGEN INC.-USASP2019209290

PATIENT
  Age: 44 Year
  Sex: Female

DRUGS (2)
  1. AIMOVIG [Suspect]
     Active Substance: ERENUMAB-AOOE
     Indication: PRODUCT USED FOR UNKNOWN INDICATION
     Dosage: 70 MILLIGRAM
     Route: 065
     Dates: start: 201812, end: 2019
  2. AIMOVIG [Suspect]
     Active Substance: ERENUMAB-AOOE
     Dosage: 140 MILLIGRAM
     Route: 065
     Dates: start: 2019

REACTIONS (15)
  - Wrong technique in product usage process [Unknown]
  - Memory impairment [Not Recovered/Not Resolved]
  - Constipation [Not Recovered/Not Resolved]
  - Muscle spasms [Recovered/Resolved]
  - Incorrect dose administered [Unknown]
  - Diarrhoea [Unknown]
  - Abdominal distension [Unknown]
  - Dyspnoea [Not Recovered/Not Resolved]
  - Accidental exposure to product [Unknown]
  - Abnormal faeces [Unknown]
  - Disturbance in attention [Not Recovered/Not Resolved]
  - Discomfort [Not Recovered/Not Resolved]
  - Confusional state [Not Recovered/Not Resolved]
  - Device use error [Unknown]
  - Flatulence [Unknown]

NARRATIVE: CASE EVENT DATE: 2019
